FAERS Safety Report 10037747 (Version 1)
Quarter: 2014Q1

REPORT INFORMATION
  Report Type: Spontaneous
  Country: PL (occurrence: None)
  Receive Date: 20140324
  Receipt Date: 20140324
  Transmission Date: 20141002
  Serious: Yes (Other)
  Sender: FDA-Public Use
  Company Number: 2014AP002124

PATIENT
  Sex: 0

DRUGS (1)
  1. RISPERIDONE (RISPERIDONE) [Suspect]

REACTIONS (3)
  - Autoimmune thyroiditis [None]
  - Adrenal insufficiency [None]
  - Blood prolactin increased [None]
